FAERS Safety Report 21681963 (Version 2)
Quarter: 2023Q1

REPORT INFORMATION
  Report Type: Spontaneous
  Country: US (occurrence: US)
  Receive Date: 20221205
  Receipt Date: 20230307
  Transmission Date: 20230418
  Serious: No
  Sender: FDA-Public Use
  Company Number: US-SA-SAC20221128000155

PATIENT
  Age: 71 Year
  Sex: Male

DRUGS (2)
  1. CAPRELSA [Suspect]
     Active Substance: VANDETANIB
     Indication: Thyroid cancer
     Dosage: 300 MG
  2. CAPRELSA [Suspect]
     Active Substance: VANDETANIB
     Dosage: 200 MG, QD
     Route: 048
     Dates: start: 20191016

REACTIONS (11)
  - Pulmonary mass [Unknown]
  - Limb injury [Unknown]
  - Skin discolouration [Unknown]
  - Urticaria [Unknown]
  - Appetite disorder [Unknown]
  - Skin swelling [Unknown]
  - Faeces soft [Recovering/Resolving]
  - Weight decreased [Unknown]
  - Diarrhoea [Recovering/Resolving]
  - Acne [Unknown]
  - Nausea [Recovering/Resolving]
